FAERS Safety Report 12215348 (Version 1)
Quarter: 2016Q1

REPORT INFORMATION
  Report Type: Spontaneous
  Country: US (occurrence: US)
  Receive Date: 20160328
  Receipt Date: 20160328
  Transmission Date: 20160526
  Serious: Yes (Hospitalization, Disabling)
  Sender: FDA-Public Use
  Company Number: US-ENDO PHARMACEUTICALS INC.-2015-005160

PATIENT
  Age: 49 Year
  Sex: Male
  Weight: 102.15 kg

DRUGS (6)
  1. TESTOSTERONE. [Suspect]
     Active Substance: TESTOSTERONE
     Indication: ANDROGEN REPLACEMENT THERAPY
     Route: 065
     Dates: start: 20060831, end: 20071226
  2. PAROXETINE [Concomitant]
     Active Substance: PAROXETINE\PAROXETINE HYDROCHLORIDE
     Indication: ANXIETY
     Route: 065
     Dates: start: 200608
  3. TRAMADOL. [Concomitant]
     Active Substance: TRAMADOL
     Indication: PAIN
     Route: 065
     Dates: start: 200612
  4. TESTIM [Suspect]
     Active Substance: TESTOSTERONE
     Indication: ANDROGEN REPLACEMENT THERAPY
     Route: 062
     Dates: start: 200701, end: 200703
  5. TESTIM [Suspect]
     Active Substance: TESTOSTERONE
     Route: 062
     Dates: start: 200801, end: 201106
  6. TESTIM [Suspect]
     Active Substance: TESTOSTERONE
     Route: 062
     Dates: end: 20140324

REACTIONS (11)
  - Myocardial infarction [Not Recovered/Not Resolved]
  - Vascular stent restenosis [Unknown]
  - Thrombosis [Unknown]
  - Hypoaesthesia [Unknown]
  - Coronary artery disease [Not Recovered/Not Resolved]
  - Heart rate irregular [Unknown]
  - Arteriosclerosis [Unknown]
  - Polycythaemia [Unknown]
  - Acute myocardial infarction [Not Recovered/Not Resolved]
  - Myocardial infarction [Not Recovered/Not Resolved]
  - Amnesia [Unknown]

NARRATIVE: CASE EVENT DATE: 2007
